FAERS Safety Report 9147436 (Version 2)
Quarter: 2013Q1

REPORT INFORMATION
  Report Type: Spontaneous
  Country: US (occurrence: US)
  Receive Date: 20130307
  Receipt Date: 20130329
  Transmission Date: 20140127
  Serious: Yes (Life-Threatening, Hospitalization)
  Sender: FDA-Public Use
  Company Number: US-ASTRAZENECA-2013SE14759

PATIENT
  Age: 15234 Day
  Sex: Female

DRUGS (8)
  1. SEROQUEL IR [Suspect]
     Indication: MAJOR DEPRESSION
     Route: 048
     Dates: start: 20121001, end: 20130221
  2. SEROQUEL IR [Suspect]
     Indication: DEPRESSION
     Route: 048
     Dates: start: 20121001, end: 20130221
  3. SEROQUEL IR [Suspect]
     Indication: SCHIZOAFFECTIVE DISORDER
     Route: 048
     Dates: start: 20121001, end: 20130221
  4. SERTRALINE [Suspect]
     Indication: MAJOR DEPRESSION
     Route: 048
     Dates: start: 20130219, end: 20130221
  5. SERTRALINE [Suspect]
     Indication: DEPRESSION
     Route: 048
     Dates: start: 20130219, end: 20130221
  6. SERTRALINE [Suspect]
     Indication: ANXIETY
     Route: 048
     Dates: start: 20130219, end: 20130221
  7. TRAZADONE [Suspect]
     Indication: INSOMNIA
     Route: 065
     Dates: start: 20121101, end: 20130221
  8. OMEPRAZOLE [Concomitant]
     Indication: GASTROOESOPHAGEAL REFLUX DISEASE

REACTIONS (1)
  - Serotonin syndrome [Recovered/Resolved]
